FAERS Safety Report 8198773-8 (Version None)
Quarter: 2012Q1

REPORT INFORMATION
  Report Type: 
  Country: None (occurrence: None)
  Receive Date: 20120309
  Receipt Date: 20120209
  Transmission Date: 20120608
  Serious: No
  Sender: FDA-Public Use
  Company Number: US-AMGEN-USASP2011048231

PATIENT
  Sex: Female

DRUGS (15)
  1. PROLIA [Suspect]
     Indication: OSTEOPOROSIS POSTMENOPAUSAL
     Dosage: 60 MG, Q6MO
     Route: 058
     Dates: start: 20110505
  2. PROLIA [Suspect]
     Dosage: 60 MG, Q6MO
     Dates: start: 20111122
  3. METOPROLOL SUCCINATE [Concomitant]
     Dosage: UNK
  4. NEXIUM [Concomitant]
     Dosage: UNK
  5. AMBIEN [Concomitant]
     Dosage: UNK
  6. LEVOTHYROXINE SODIUM [Concomitant]
     Dosage: UNK
  7. VITAMIN D [Concomitant]
     Dosage: UNK
  8. OXYCONTIN [Concomitant]
     Dosage: UNK
  9. DOMPERIDONE [Concomitant]
     Dosage: UNK
  10. PERCOCET [Concomitant]
     Dosage: UNK
  11. PREDNISONE TAB [Concomitant]
     Dosage: UNK
  12. CALCIUM [Concomitant]
     Dosage: UNK
  13. MAGNESIUM [Concomitant]
     Dosage: UNK
  14. RITUXAN [Concomitant]
     Dosage: UNK
  15. SENNA [Concomitant]
     Dosage: UNK

REACTIONS (3)
  - STOMATITIS [None]
  - SALIVA ALTERED [None]
  - DYSGEUSIA [None]
